FAERS Safety Report 6543968-X (Version None)
Quarter: 2010Q1

REPORT INFORMATION
  Report Type: 
  Country: None (occurrence: None)
  Receive Date: 20100120
  Receipt Date: 20100108
  Transmission Date: 20100710
  Serious: Yes (Other)
  Sender: FDA-Public Use
  Company Number: PHHY2010BR01254

PATIENT
  Sex: Female

DRUGS (6)
  1. DIOVAN HCT [Suspect]
     Indication: HYPERTENSION
     Dosage: 1 TABLET(160/12.5 MG)/DAY
     Route: 048
  2. DIOVAN HCT [Suspect]
     Dosage: 2 TABLET/DAY
     Route: 048
  3. AMLODIPINE [Concomitant]
     Dosage: 1 TABLET/DAY
     Route: 048
  4. PIROXICAM [Concomitant]
     Indication: ARTHRITIS
     Dosage: UNK
     Dates: start: 20090101
  5. PIROXICAM [Concomitant]
     Indication: OSTEOARTHRITIS
  6. ESTRADIOL VALERATE [Concomitant]
     Indication: HORMONE REPLACEMENT THERAPY
     Dosage: UNK
     Dates: start: 19990101

REACTIONS (2)
  - BLOOD PRESSURE INCREASED [None]
  - EMOTIONAL DISORDER [None]
